FAERS Safety Report 25995247 (Version 1)
Quarter: 2025Q4

REPORT INFORMATION
  Report Type: Spontaneous
  Country: CA (occurrence: CA)
  Receive Date: 20251104
  Receipt Date: 20251104
  Transmission Date: 20260117
  Serious: Yes (Hospitalization)
  Sender: GALPHARM INTERNATIONAL
  Company Number: CA-PERRIGO-25CA012494

PATIENT
  Age: 7 Year
  Sex: Female
  Weight: 24 kg

DRUGS (1)
  1. IBUPROFEN [Suspect]
     Active Substance: IBUPROFEN
     Indication: Abdominal pain
     Dosage: UNKNOWN, UNKNOWN
     Route: 048

REACTIONS (2)
  - Abdominal pain [Recovered/Resolved]
  - Gastritis [Recovered/Resolved]
